FAERS Safety Report 9012346 (Version 1)
Quarter: 2012Q4

REPORT INFORMATION
  Report Type: Spontaneous
  Country: BR (occurrence: None)
  Receive Date: 20121231
  Receipt Date: 20121231
  Transmission Date: 20130627
  Serious: Yes (Other)
  Sender: FDA-Public Use
  Company Number: DSU-2012-10165

PATIENT
  Age: 56 Year
  Sex: Male

DRUGS (1)
  1. OLMETEC [Suspect]
     Indication: DRUG USE FOR UNKNOWN INDICATION
     Route: 048
     Dates: start: 201204

REACTIONS (2)
  - Feeling abnormal [None]
  - Syncope [None]
